FAERS Safety Report 9008936 (Version 4)
Quarter: 2013Q4

REPORT INFORMATION
  Report Type: Spontaneous
  Country: GB (occurrence: GB)
  Receive Date: 20130111
  Receipt Date: 20131001
  Transmission Date: 20140711
  Serious: Yes (Hospitalization)
  Sender: FDA-Public Use
  Company Number: GB-BAYER-2013-002531

PATIENT
  Age: 73 Year
  Sex: Female

DRUGS (4)
  1. CIPROFLOXACIN [Suspect]
     Indication: PNEUMONIA
     Dosage: UNK
     Dates: start: 20110215, end: 20110303
  2. OMEPRAZOLE [Suspect]
     Dosage: UNK
  3. PIPERACILLIN W/TAZOBACTAM [Suspect]
     Indication: PERITONITIS BACTERIAL
     Dosage: 4.5 G, TID
     Route: 042
     Dates: end: 20110504
  4. TAZOCIN [Suspect]
     Indication: PNEUMONIA
     Dosage: UNK
     Dates: start: 20110211, end: 20110215

REACTIONS (3)
  - Clostridium difficile infection [Recovered/Resolved]
  - Diarrhoea [Recovered/Resolved]
  - Intestinal dilatation [Unknown]
